FAERS Safety Report 9084538 (Version 1)
Quarter: 2013Q1

REPORT INFORMATION
  Report Type: Report from Study
  Country: US (occurrence: US)
  Receive Date: 20130131
  Receipt Date: 20130131
  Transmission Date: 20140127
  Serious: No
  Sender: FDA-Public Use
  Company Number: US-ABBOTT-12P-163-0990810-00

PATIENT
  Age: 28 Year
  Sex: Male

DRUGS (4)
  1. HUMIRA [Suspect]
     Indication: PSORIASIS
     Dosage: DAY ONE
     Dates: start: 20120910
  2. HUMIRA [Suspect]
     Dosage: DAY SEVEN
  3. HUMIRA [Suspect]
     Dosage: DAY 22
  4. HUMIRA [Suspect]

REACTIONS (2)
  - Pruritus [Unknown]
  - Local swelling [Unknown]
